FAERS Safety Report 13646206 (Version 1)
Quarter: 2017Q2

REPORT INFORMATION
  Report Type: Spontaneous
  Country: US (occurrence: US)
  Receive Date: 20170612
  Receipt Date: 20170612
  Transmission Date: 20170830
  Serious: Yes (Hospitalization, Disabling, Other)
  Sender: FDA-Public Use
  Company Number: None

PATIENT
  Age: 64 Year
  Sex: Female
  Weight: 87.3 kg

DRUGS (9)
  1. TOPROL XL [Concomitant]
     Active Substance: METOPROLOL SUCCINATE
  2. METHOTREXATE TABLETS 2.5MG [Suspect]
     Active Substance: METHOTREXATE
     Indication: RHEUMATOID ARTHRITIS
     Dosage: ?          QUANTITY:8 TABLET(S);OTHER FREQUENCY:ONCE A WEEK;?
     Route: 048
     Dates: start: 20160525, end: 20161230
  3. MULTIVITAMIN [Concomitant]
     Active Substance: VITAMINS
  4. XARELTO [Concomitant]
     Active Substance: RIVAROXABAN
  5. CALCIUM [Concomitant]
     Active Substance: CALCIUM
  6. CELEBREX [Concomitant]
     Active Substance: CELECOXIB
  7. LISINOPRIL. [Concomitant]
     Active Substance: LISINOPRIL
  8. AMLODIPINE [Concomitant]
     Active Substance: AMLODIPINE BESYLATE
  9. IRON [Concomitant]
     Active Substance: IRON

REACTIONS (1)
  - Traumatic lung injury [None]

NARRATIVE: CASE EVENT DATE: 20170110
